FAERS Safety Report 7949188-6 (Version None)
Quarter: 2011Q4

REPORT INFORMATION
  Report Type: 
  Country: None (occurrence: None)
  Receive Date: 20111125
  Receipt Date: 20111114
  Transmission Date: 20120403
  Serious: Yes (Hospitalization)
  Sender: FDA-Public Use
  Company Number: 2011SP003855

PATIENT
  Age: 67 Year
  Sex: Female

DRUGS (7)
  1. LATUDA [Suspect]
     Indication: SCHIZOPHRENIA
     Dosage: 40 MG;HS;ORAL ; 80 MG;HS;ORAL
     Route: 048
     Dates: start: 20110721, end: 20110801
  2. LATUDA [Suspect]
     Indication: SCHIZOPHRENIA
     Dosage: 40 MG;HS;ORAL ; 80 MG;HS;ORAL
     Route: 048
     Dates: start: 20110718, end: 20110720
  3. MAXZIDE [Concomitant]
  4. KLONOPIN [Concomitant]
  5. DILANTIN [Concomitant]
  6. VERAPAMIL [Concomitant]
  7. LAMICTAL [Concomitant]

REACTIONS (1)
  - ANTICONVULSANT DRUG LEVEL INCREASED [None]
